FAERS Safety Report 14313781 (Version 2)
Quarter: 2017Q4

REPORT INFORMATION
  Report Type: Spontaneous
  Country: SE (occurrence: SE)
  Receive Date: 20171221
  Receipt Date: 20171222
  Transmission Date: 20180321
  Serious: Yes (Life-Threatening, Hospitalization)
  Sender: FDA-Public Use
  Company Number: SE-ASTRAZENECA-2017SF29528

PATIENT
  Age: 29 Year
  Sex: Female

DRUGS (1)
  1. SEROQUEL [Suspect]
     Active Substance: QUETIAPINE FUMARATE
     Route: 048
     Dates: start: 20160101, end: 20160105

REACTIONS (5)
  - Alcohol abuse [Recovering/Resolving]
  - Pupillary deformity [Recovering/Resolving]
  - Wound [Recovering/Resolving]
  - Anger [Recovering/Resolving]
  - Cerebral palsy [Recovering/Resolving]

NARRATIVE: CASE EVENT DATE: 201601
